FAERS Safety Report 9029911 (Version 3)
Quarter: 2013Q2

REPORT INFORMATION
  Report Type: Spontaneous
  Country: US (occurrence: US)
  Receive Date: 20130124
  Receipt Date: 20130411
  Transmission Date: 20140414
  Serious: No
  Sender: FDA-Public Use
  Company Number: US-009507513-1301USA009560

PATIENT
  Age: 22 Year
  Sex: Male
  Weight: 90.7 kg

DRUGS (6)
  1. VICTRELIS [Suspect]
     Dosage: 4 CAPSULES (800 MG), TID, 7-9 HOURS APART
     Route: 048
  2. PEGINTRON [Suspect]
     Dosage: INJECT 150 MICROGRAM (0.5 ML), SQ, EVERY WEEK
     Route: 058
  3. PEGINTRON [Suspect]
     Dosage: 50 MICROGRAM STRENGTH
  4. RIBAPAK [Suspect]
     Dosage: 1200/DAY
     Route: 048
  5. AUGMENTIN [Concomitant]
  6. FLONASE [Concomitant]

REACTIONS (16)
  - Syncope [Recovered/Resolved]
  - Flushing [Recovered/Resolved]
  - Feeling hot [Unknown]
  - Flushing [Unknown]
  - Hyperhidrosis [Unknown]
  - Nausea [Unknown]
  - Fatigue [Unknown]
  - Pain [Unknown]
  - Tongue coated [Unknown]
  - Nasal congestion [Unknown]
  - Pharyngeal disorder [Unknown]
  - Oropharyngeal pain [Unknown]
  - Sinusitis [Unknown]
  - Tongue haemorrhage [Unknown]
  - Dysgeusia [Unknown]
  - Sinus disorder [Unknown]
